FAERS Safety Report 9550400 (Version 1)
Quarter: 2013Q3

REPORT INFORMATION
  Report Type: Spontaneous
  Country: US (occurrence: US)
  Receive Date: 20130924
  Receipt Date: 20130924
  Transmission Date: 20140515
  Serious: No
  Sender: FDA-Public Use
  Company Number: US-SANOFI-AVENTIS-2013SA093721

PATIENT
  Sex: Female

DRUGS (1)
  1. AUBAGIO [Suspect]
     Route: 048
     Dates: start: 201301

REACTIONS (3)
  - Mucous stools [Not Recovered/Not Resolved]
  - Pain [Recovered/Resolved]
  - Nausea [Recovered/Resolved]
